FAERS Safety Report 6078266-4 (Version None)
Quarter: 2009Q1

REPORT INFORMATION
  Report Type: 
  Country: None (occurrence: None)
  Receive Date: 20090213
  Receipt Date: 20090211
  Transmission Date: 20090719
  Serious: Yes (Death)
  Sender: FDA-Public Use
  Company Number: HR-ABBOTT-09P-216-0501135-00

PATIENT
  Sex: Male

DRUGS (7)
  1. ZEMPLAR [Suspect]
     Indication: HYPERPARATHYROIDISM
     Dosage: ONE WEEK 10MCG OTHER 15MCG
     Dates: start: 20080123
  2. NORVASC [Concomitant]
     Indication: DRUG USE FOR UNKNOWN INDICATION
     Dosage: PER OS
  3. CACO3 [Concomitant]
     Indication: DRUG USE FOR UNKNOWN INDICATION
     Dosage: PER OS
  4. LANZUL S [Concomitant]
     Indication: DRUG USE FOR UNKNOWN INDICATION
  5. DEXAMETHASONE TAB [Concomitant]
     Indication: PROPHYLAXIS
     Route: 030
  6. DEXAMETHASONE TAB [Concomitant]
     Indication: BRAIN OEDEMA
  7. PHENOBARBITON [Concomitant]
     Indication: DRUG USE FOR UNKNOWN INDICATION

REACTIONS (1)
  - ANAPLASTIC ASTROCYTOMA [None]
